FAERS Safety Report 7451205-7 (Version None)
Quarter: 2011Q2

REPORT INFORMATION
  Report Type: 
  Country: None (occurrence: None)
  Receive Date: 20110502
  Receipt Date: 20110421
  Transmission Date: 20111010
  Serious: Yes (Other)
  Sender: FDA-Public Use
  Company Number: US-AMGEN-USASP2011021156

PATIENT
  Age: 68 Year
  Sex: Female

DRUGS (1)
  1. XGEVA [Suspect]
     Indication: BREAST DISORDER
     Dosage: UNK UNK, QMO
     Dates: start: 20110101

REACTIONS (2)
  - ASTHENIA [None]
  - DYSPNOEA [None]
